FAERS Safety Report 19051015 (Version 1)
Quarter: 2021Q1

REPORT INFORMATION
  Report Type: Spontaneous
  Country: US (occurrence: US)
  Receive Date: 20210324
  Receipt Date: 20210324
  Transmission Date: 20210420
  Serious: No
  Sender: FDA-Public Use
  Company Number: US-ALLERGAN-2012330US

PATIENT
  Sex: Female

DRUGS (2)
  1. CANASA [Suspect]
     Active Substance: MESALAMINE
     Indication: IRRITABLE BOWEL SYNDROME
     Dosage: UNK
     Route: 065
     Dates: start: 2018
  2. CANASA [Suspect]
     Active Substance: MESALAMINE
     Indication: COLITIS

REACTIONS (1)
  - Off label use [Unknown]
